FAERS Safety Report 7604073-4 (Version None)
Quarter: 2011Q2

REPORT INFORMATION
  Report Type: 
  Country: None (occurrence: None)
  Receive Date: 20110630
  Receipt Date: 20110617
  Transmission Date: 20111010
  Serious: Yes (Hospitalization)
  Sender: FDA-Public Use
  Company Number: 2011AP001262

PATIENT
  Sex: Female

DRUGS (2)
  1. RISPERIDONE [Concomitant]
  2. RISPERIDONE [Suspect]
     Indication: PRODUCT USED FOR UNKNOWN INDICATION
     Dosage: PO
     Route: 048

REACTIONS (2)
  - TREATMENT NONCOMPLIANCE [None]
  - SCHIZOPHRENIA [None]
